FAERS Safety Report 9570851 (Version 2)
Quarter: 2015Q1

REPORT INFORMATION
  Report Type: Spontaneous
  Country: US (occurrence: US)
  Receive Date: 20131001
  Receipt Date: 20150221
  Transmission Date: 20150721
  Serious: Yes (Hospitalization, Other)
  Sender: FDA-Public Use
  Company Number: US-JNJFOC-20130910982

PATIENT
  Age: 54 Year
  Sex: Female

DRUGS (1)
  1. BENADRYL ALLERGY [Suspect]
     Active Substance: DIPHENHYDRAMINE HYDROCHLORIDE
     Indication: HYPERSENSITIVITY
     Route: 048

REACTIONS (2)
  - Hypersensitivity [Unknown]
  - Dyspnoea [Unknown]
